FAERS Safety Report 8756004 (Version 2)
Quarter: 2012Q4

REPORT INFORMATION
  Report Type: Spontaneous
  Country: US (occurrence: None)
  Receive Date: 20120816
  Receipt Date: 20120830
  Transmission Date: 20130627
  Serious: Yes (Hospitalization)
  Sender: FDA-Public Use
  Company Number: JPI-P-022919

PATIENT
  Age: 26 Year
  Sex: Male

DRUGS (9)
  1. XYREM [Suspect]
     Indication: CATAPLEXY
     Dates: start: 20120523, end: 2012
  2. XYREM [Suspect]
     Indication: CATAPLEXY
     Route: 048
  3. XYREM [Suspect]
     Indication: CATAPLEXY
     Route: 048
     Dates: start: 2012, end: 2012
  4. XYREM [Suspect]
     Indication: CATAPLEXY
     Route: 048
     Dates: end: 2012
  5. XYREM [Suspect]
     Indication: CATAPLEXY
     Route: 048
  6. XYREM [Suspect]
     Indication: CATAPLEXY
     Dates: start: 2012, end: 20120723
  7. XYREM [Suspect]
     Indication: CATAPLEXY
     Route: 048
  8. METHYLPHENIDATE HYDROCHLORIDE [Concomitant]
  9. LEVETIRACETAM [Concomitant]

REACTIONS (12)
  - Hallucination [None]
  - Drug withdrawal syndrome [None]
  - Convulsion [None]
  - Dysgeusia [None]
  - Insomnia [None]
  - Anxiety [None]
  - Tremor [None]
  - Fatigue [None]
  - Incorrect dose administered [None]
  - Drug dose omission [None]
  - Dementia [None]
  - Amnesia [None]
